FAERS Safety Report 9817532 (Version 3)
Quarter: 2014Q1

REPORT INFORMATION
  Report Type: Spontaneous
  Country: JP (occurrence: JP)
  Receive Date: 20140115
  Receipt Date: 20140225
  Transmission Date: 20141002
  Serious: Yes (Life-Threatening, Hospitalization, Other)
  Sender: FDA-Public Use
  Company Number: JP-ROCHE-1333246

PATIENT
  Age: 45 Year
  Sex: Female
  Weight: 45 kg

DRUGS (14)
  1. XOLAIR [Suspect]
     Indication: ASTHMA
     Route: 058
     Dates: start: 20131008
  2. XOLAIR [Suspect]
     Route: 058
     Dates: start: 20131023
  3. XOLAIR [Suspect]
     Route: 058
     Dates: start: 20131105
  4. XOLAIR [Suspect]
     Route: 058
     Dates: start: 20131119
  5. XOLAIR [Suspect]
     Route: 058
     Dates: start: 20131203
  6. XOLAIR [Suspect]
     Route: 058
     Dates: start: 20131217
  7. HOKUNALIN [Concomitant]
  8. IPD [Concomitant]
  9. ALVESCO [Concomitant]
  10. KIPRES [Concomitant]
     Route: 065
     Dates: start: 20130702
  11. RULID [Concomitant]
     Route: 065
     Dates: start: 20131203, end: 20131217
  12. PREDNISOLONE [Concomitant]
  13. RESTAMIN [Concomitant]
  14. CHLOR-TRIMETON [Concomitant]

REACTIONS (10)
  - Anaphylactic reaction [Recovered/Resolved]
  - Oropharyngeal discomfort [Recovering/Resolving]
  - Depressed level of consciousness [Unknown]
  - Type I hypersensitivity [Unknown]
  - Respiratory arrest [Recovering/Resolving]
  - Respiratory distress [Recovering/Resolving]
  - Respiratory failure [Recovering/Resolving]
  - Convulsion [Recovered/Resolved]
  - Blood pressure increased [Unknown]
  - Heart rate increased [Recovered/Resolved]
